FAERS Safety Report 9567533 (Version 1)
Quarter: 2013Q3

REPORT INFORMATION
  Report Type: Spontaneous
  Country: US (occurrence: US)
  Receive Date: 20130930
  Receipt Date: 20130930
  Transmission Date: 20140515
  Serious: No
  Sender: FDA-Public Use
  Company Number: US-AMGEN-USASP2012074819

PATIENT
  Sex: Female
  Weight: 71.66 kg

DRUGS (10)
  1. ENBREL [Suspect]
     Indication: RHEUMATOID ARTHRITIS
     Dosage: 50 MG, QWK
     Route: 058
  2. COZAAR [Concomitant]
     Dosage: 100 MG, UNK
  3. ARAVA [Concomitant]
     Dosage: 10 MG, UNK
     Route: 048
  4. LASIX                              /00032601/ [Concomitant]
     Dosage: 20 MG, UNK
     Route: 048
  5. NIACIN [Concomitant]
     Dosage: 100 MG, UNK
     Route: 048
  6. ZOLOFT [Concomitant]
     Dosage: 25 MG, UNK
     Route: 048
  7. VALIUM                             /00017001/ [Concomitant]
     Dosage: 2 MG, UNK
     Route: 048
  8. ADVAIR [Concomitant]
     Dosage: 500/50 IN
  9. SPIRIVA [Concomitant]
     Dosage: UNK HAND INHAL
  10. LORTAB                             /00607101/ [Concomitant]
     Dosage: 10-500 MG
     Route: 048

REACTIONS (3)
  - Gait disturbance [Unknown]
  - Walking aid user [Unknown]
  - Paraesthesia [Unknown]
